FAERS Safety Report 5982179-3 (Version None)
Quarter: 2008Q4

REPORT INFORMATION
  Report Type: 
  Country: None (occurrence: None)
  Receive Date: 20081208
  Receipt Date: 20081202
  Transmission Date: 20090506
  Serious: Yes (Hospitalization)
  Sender: FDA-Public Use
  Company Number: A0751574A

PATIENT
  Age: 68 Year
  Sex: Female

DRUGS (1)
  1. ADVAIR HFA [Suspect]
     Indication: ASTHMA
     Dosage: 1PUFF TWICE PER DAY
     Route: 055
     Dates: start: 20020101

REACTIONS (4)
  - CHEST DISCOMFORT [None]
  - MYOCARDIAL INFARCTION [None]
  - PNEUMONIA [None]
  - PRODUCT QUALITY ISSUE [None]
